FAERS Safety Report 5038687-5 (Version None)
Quarter: 2006Q2

REPORT INFORMATION
  Report Type: 
  Country: None (occurrence: None)
  Receive Date: 20060629
  Receipt Date: 20060118
  Transmission Date: 20061013
  Serious: No
  Sender: FDA-Public Use
  Company Number: US-BRISTOL-MYERS SQUIBB COMPANY-13250360

PATIENT
  Age: 58 Year
  Sex: Male
  Weight: 66 kg

DRUGS (4)
  1. SUSTIVA [Suspect]
     Indication: HIV TEST POSITIVE
     Dates: start: 20060116
  2. REYATAZ [Suspect]
     Dates: start: 20051123, end: 20060115
  3. ALBUTEROL [Concomitant]
  4. TRUVADA [Concomitant]

REACTIONS (5)
  - BRADYPHRENIA [None]
  - DIARRHOEA [None]
  - DIZZINESS [None]
  - FLUSHING [None]
  - HYPOAESTHESIA [None]
